FAERS Safety Report 4641015-8 (Version None)
Quarter: 2005Q1

REPORT INFORMATION
  Report Type: 
  Country: None (occurrence: None)
  Receive Date: 20050324
  Receipt Date: 20040921
  Transmission Date: 20050727
  Serious: Yes (Hospitalization)
  Sender: FDA-Public Use
  Company Number: US092464

PATIENT
  Age: 76 Year
  Sex: Female
  Weight: 63.6 kg

DRUGS (14)
  1. NEUPOGEN [Suspect]
     Indication: CHEMOTHERAPY
     Dosage: 300 MCG, 1 IN 1 DAYS, SC
     Route: 058
     Dates: start: 20040517
  2. DAUNORUBICIN HCL [Suspect]
     Indication: ACUTE MYELOID LEUKAEMIA
     Dosage: 45 MG/ M2, IV
     Route: 042
     Dates: start: 20040504
  3. CYTARABINE [Suspect]
     Indication: ACUTE MYELOID LEUKAEMIA
     Dosage: 100 MG/M2, IV
     Route: 042
     Dates: start: 20040504
  4. ANUSOL [Concomitant]
  5. GLIMEPIRIDE [Concomitant]
  6. LISINOPRIL [Concomitant]
  7. METFORMIN HCL [Concomitant]
  8. SIMVASTATIN [Concomitant]
  9. METOPROLOL SUCCINATE [Concomitant]
  10. RABEPRAZOLE SODIUM [Concomitant]
  11. ALLOPURINOL [Concomitant]
  12. ALPRAZOLAM [Concomitant]
  13. PANTOPRAZOLE SODIUM [Concomitant]
  14. FLUCONAZOLE [Concomitant]

REACTIONS (7)
  - ARTHRALGIA [None]
  - CHILLS [None]
  - DIARRHOEA [None]
  - FATIGUE [None]
  - FEBRILE NEUTROPENIA [None]
  - HEADACHE [None]
  - PARONYCHIA [None]
